FAERS Safety Report 18259983 (Version 2)
Quarter: 2023Q1

REPORT INFORMATION
  Report Type: Spontaneous
  Country: DE (occurrence: DE)
  Receive Date: 20200912
  Receipt Date: 20230109
  Transmission Date: 20230418
  Serious: Yes (Life-Threatening, Hospitalization)
  Sender: FDA-Public Use
  Company Number: None

PATIENT
  Age: 64 Year
  Sex: Male

DRUGS (7)
  1. PEMETREXED [Suspect]
     Active Substance: PEMETREXED
     Indication: Product used for unknown indication
     Dosage: NK MG, 17062020
     Route: 065
     Dates: start: 20200617
  2. PREDNISOLONE [Suspect]
     Active Substance: PREDNISOLONE
     Indication: Product used for unknown indication
     Dosage: 100 MG/ TAG, 1X
     Route: 065
  3. PALEXIA [Concomitant]
     Active Substance: TAPENTADOL HYDROCHLORIDE
     Indication: Product used for unknown indication
     Dosage: 50 MG (BEI BEDARF)
     Route: 065
  4. FOLIC ACID [Concomitant]
     Active Substance: FOLIC ACID
     Indication: Product used for unknown indication
     Dosage: 5 MG, QD (1-0-0-0)
     Route: 065
  5. ENOXAPARIN [Concomitant]
     Active Substance: ENOXAPARIN
     Indication: Product used for unknown indication
     Dosage: UNK (NK MG, ABGESETZT 27052020)
     Route: 065
     Dates: start: 20200527
  6. LEVOTHYROXINE SODIUM [Concomitant]
     Active Substance: LEVOTHYROXINE SODIUM
     Indication: Product used for unknown indication
     Dosage: 25 UG, QD (1-0-0-0)
     Route: 048
  7. RAMIPRIL [Concomitant]
     Active Substance: RAMIPRIL
     Indication: Product used for unknown indication
     Dosage: 2.5 MG, QD (0-0-1-0)
     Route: 065

REACTIONS (4)
  - Condition aggravated [Unknown]
  - Oedema peripheral [Unknown]
  - Dyspnoea [Unknown]
  - Gait disturbance [Unknown]
